FAERS Safety Report 18122379 (Version 1)
Quarter: 2020Q3

REPORT INFORMATION
  Report Type: Spontaneous
  Country: US (occurrence: US)
  Receive Date: 20200806
  Receipt Date: 20200806
  Transmission Date: 20201103
  Serious: Yes (Hospitalization)
  Sender: FDA-Public Use
  Company Number: None

PATIENT
  Age: 40 Year
  Sex: Female

DRUGS (1)
  1. SOFOSBUVIR/VELPATASVIR 400?100 MG ASEGUA THERAPEUTICS [Suspect]
     Active Substance: SOFOSBUVIR\VELPATASVIR
     Dosage: ?          OTHER DOSE:400/100 MG;?
     Route: 048
     Dates: start: 20200716

REACTIONS (2)
  - Cauda equina syndrome [None]
  - Therapy interrupted [None]

NARRATIVE: CASE EVENT DATE: 20200718
